FAERS Safety Report 9776346 (Version 1)
Quarter: 2013Q4

REPORT INFORMATION
  Report Type: Spontaneous
  Country: IT (occurrence: IT)
  Receive Date: 20131220
  Receipt Date: 20131220
  Transmission Date: 20140711
  Serious: Yes (Other)
  Sender: FDA-Public Use
  Company Number: PHHY2013IT146143

PATIENT
  Age: 41 Year
  Sex: Female

DRUGS (1)
  1. RISPERIDONE [Suspect]
     Indication: SCHIZOPHRENIA
     Dosage: 2 MG, UNK

REACTIONS (8)
  - Mastitis [Recovered/Resolved]
  - Breast pain [Recovered/Resolved]
  - Breast inflammation [Recovered/Resolved]
  - Breast ulceration [Recovered/Resolved]
  - Erythema [Recovered/Resolved]
  - Breast mass [Recovered/Resolved]
  - Peau d^orange [Recovered/Resolved]
  - Hyperprolactinaemia [Recovered/Resolved]
